FAERS Safety Report 4911058-5 (Version None)
Quarter: 2006Q1

REPORT INFORMATION
  Report Type: 
  Country: None (occurrence: None)
  Receive Date: 20060209
  Receipt Date: 20060127
  Transmission Date: 20060701
  Serious: Yes (Other)
  Sender: FDA-Public Use
  Company Number: 2005159727

PATIENT
  Age: 86 Year
  Sex: Male
  Weight: 30 kg

DRUGS (10)
  1. UNASYN [Suspect]
     Indication: PNEUMONIA
     Dosage: 6 GRAM (3 GRAM, 2 IN 1 D), INTRAVENOUS
     Route: 042
     Dates: start: 20051022, end: 20051105
  2. UNASYN [Suspect]
     Indication: PNEUMONIA
     Dosage: 6 GRAM (3 GRAM, 2 IN 1 D), INTRAVENOUS
     Route: 042
     Dates: start: 20050624, end: 20051107
  3. CEFOTIAM HYDROCHLORIDE [Suspect]
     Indication: PNEUMONIA
     Dosage: 2 GRAM (1 GRAM, 2 IN 1 D), INTRAVENOUS
     Route: 042
     Dates: start: 20050905, end: 20050907
  4. PIPERACILLIN SODIUM [Suspect]
     Indication: PNEUMONIA
     Dosage: 2 GRAM (1 GRAM, 2 IN 1 D), INTRAVENOUS
     Route: 042
     Dates: start: 20050929, end: 20051007
  5. CARBENIN (BETAMIPRON, PANIPENEM) [Suspect]
     Indication: PYREXIA
     Dosage: 0.5 GRAM (0.25 GRAM, 2 IN 1 D), INTRAVENOUS
     Route: 042
     Dates: start: 20050906, end: 20051122
  6. CARBENIN (BETAMIPRON, PANIPENEM) [Suspect]
     Indication: WHITE BLOOD CELL COUNT INCREASED
     Dosage: 0.5 GRAM (0.25 GRAM, 2 IN 1 D), INTRAVENOUS
     Route: 042
     Dates: start: 20050906, end: 20051122
  7. HUMULIN R [Concomitant]
  8. ALL OTHER THERAPEUTIC PRODUCTS (ALL OTHER THERAPEUTIC PRODUCTS) [Concomitant]
  9. FAMOTIDINE [Concomitant]
  10. NEOLAMIN MULTI V (VITAMINS NOS) [Concomitant]

REACTIONS (11)
  - ASPIRATION [None]
  - ECZEMA ASTEATOTIC [None]
  - EOSINOPHILIA [None]
  - ERYTHEMA [None]
  - HYPEREOSINOPHILIC SYNDROME [None]
  - PNEUMONIA ASPIRATION [None]
  - PRURITUS [None]
  - PYREXIA [None]
  - SEBORRHOEIC DERMATITIS [None]
  - SKIN EXFOLIATION [None]
  - WHITE BLOOD CELL COUNT INCREASED [None]
